FAERS Safety Report 4774677-5 (Version None)
Quarter: 2005Q3

REPORT INFORMATION
  Report Type: 
  Country: None (occurrence: None)
  Receive Date: 20050919
  Receipt Date: 20050908
  Transmission Date: 20060218
  Serious: Yes (Hospitalization)
  Sender: FDA-Public Use
  Company Number: 033-2

PATIENT
  Age: 76 Year
  Sex: Male

DRUGS (2)
  1. TEVETEN HCT [Suspect]
     Indication: HYPERTENSION
     Dosage: 1 TABLET (S) PO
     Route: 048
     Dates: start: 20041118
  2. DICLOFENAC [Concomitant]

REACTIONS (7)
  - BRAIN STEM INFARCTION [None]
  - CEREBELLAR SYNDROME [None]
  - CEREBRAL ATHEROSCLEROSIS [None]
  - HYPERTENSION [None]
  - REFUSAL OF TREATMENT BY PATIENT [None]
  - RETINOPATHY HYPERTENSIVE [None]
  - VENTRICULAR HYPERTROPHY [None]
